FAERS Safety Report 17496466 (Version 4)
Quarter: 2020Q2

REPORT INFORMATION
  Report Type: Report from Study
  Country: US (occurrence: US)
  Receive Date: 20200304
  Receipt Date: 20200530
  Transmission Date: 20200713
  Serious: Yes (Other)
  Sender: FDA-Public Use
  Company Number: NVSC2020US057394

PATIENT
  Sex: Female

DRUGS (4)
  1. BEOVU [Suspect]
     Active Substance: BROLUCIZUMAB-DBLL
     Indication: NEOVASCULAR AGE-RELATED MACULAR DEGENERATION
     Dosage: UNK
     Route: 047
     Dates: start: 20200224
  2. BEOVU [Suspect]
     Active Substance: BROLUCIZUMAB-DBLL
     Dosage: UNK
     Route: 047
     Dates: start: 20200224
  3. BEOVU [Suspect]
     Active Substance: BROLUCIZUMAB-DBLL
     Dosage: UNK
     Route: 047
     Dates: start: 20190224
  4. EYLEA [Concomitant]
     Active Substance: AFLIBERCEPT
     Indication: PRODUCT USED FOR UNKNOWN INDICATION
     Route: 065

REACTIONS (7)
  - Glaucoma [Unknown]
  - Ocular discomfort [Unknown]
  - Injection site pain [Unknown]
  - Visual impairment [Unknown]
  - Stress [Unknown]
  - Lacrimation increased [Unknown]
  - Angiopathy [Unknown]
